FAERS Safety Report 10068793 (Version 1)
Quarter: 2014Q2

REPORT INFORMATION
  Report Type: Report from Study
  Country: US (occurrence: KR)
  Receive Date: 20140409
  Receipt Date: 20140409
  Transmission Date: 20141212
  Serious: Yes (Hospitalization)
  Sender: FDA-Public Use
  Company Number: KR-FRI-1000066261

PATIENT
  Age: 71 Year
  Sex: Male
  Weight: 50 kg

DRUGS (5)
  1. ROFLUMILAST [Suspect]
     Indication: CHRONIC OBSTRUCTIVE PULMONARY DISEASE
     Dosage: 500 MCG
     Route: 048
     Dates: start: 20130712, end: 20140130
  2. SPIRIVA [Concomitant]
     Dates: start: 20100714
  3. SYMBICORT [Concomitant]
     Dates: start: 20100714
  4. SURFOLASE [Concomitant]
     Dates: start: 20120109
  5. ERDOS [Concomitant]
     Dates: start: 20100714

REACTIONS (1)
  - Pneumonia [Recovering/Resolving]
